FAERS Safety Report 19655130 (Version 3)
Quarter: 2021Q3

REPORT INFORMATION
  Report Type: Spontaneous
  Country: ES (occurrence: ES)
  Receive Date: 20210804
  Receipt Date: 20210830
  Transmission Date: 20211014
  Serious: Yes (Hospitalization, Other)
  Sender: FDA-Public Use
  Company Number: ES-AUROBINDO-AUR-APL-2021-033144

PATIENT
  Age: 56 Year
  Sex: Female

DRUGS (6)
  1. TRAZODONE [Suspect]
     Active Substance: TRAZODONE HYDROCHLORIDE
     Indication: ANTIDEPRESSANT THERAPY
     Dosage: 100 MILLIGRAM, ONCE A DAY
     Route: 065
  2. MIDAZOLAM. [Concomitant]
     Active Substance: MIDAZOLAM
     Indication: ANTIDEPRESSANT THERAPY
     Dosage: 7.5 MILLIGRAM, ONCE A DAY
     Route: 065
  3. CLOMIPRAMINE [Suspect]
     Active Substance: CLOMIPRAMINE
     Indication: ANTIDEPRESSANT THERAPY
     Dosage: 75 MILLIGRAM, ONCE A DAY
     Route: 065
  4. DULOXETINE. [Suspect]
     Active Substance: DULOXETINE
     Indication: ANTIDEPRESSANT THERAPY
     Dosage: IN DESCENDING DOSE FROM 90 TO 10 MG DAILY
     Route: 065
  5. VORTIOXETINE. [Suspect]
     Active Substance: VORTIOXETINE
     Indication: ANTIDEPRESSANT THERAPY
     Dosage: ONCE A DAY(IN ASCENDING DOSE FROM 5 TO 30 MG DAILY AND IN DESCENDING DOSE UNTIL SUSPENSION)
     Route: 048
  6. LORAZEPAM. [Concomitant]
     Active Substance: LORAZEPAM
     Indication: ANTIDEPRESSANT THERAPY
     Dosage: 1 MILLIGRAM(1 MG IF NECESSARY (3 DOSES ADMINISTERED))
     Route: 065

REACTIONS (2)
  - Prescribed overdose [Unknown]
  - Drug-induced liver injury [Recovered/Resolved]
